FAERS Safety Report 11521463 (Version 5)
Quarter: 2016Q1

REPORT INFORMATION
  Report Type: Spontaneous
  Country: JP (occurrence: None)
  Receive Date: 20150918
  Receipt Date: 20160310
  Transmission Date: 20160525
  Serious: Yes (Death, Hospitalization, Other)
  Sender: FDA-Public Use
  Company Number: JP-MDT-ADR-2015-01806

PATIENT
  Age: 20 Year
  Sex: Female
  Weight: 29 kg

DRUGS (1)
  1. GABALON INTRATHECAL 2000MCG/ML [Suspect]
     Active Substance: BACLOFEN
     Indication: CEREBRAL PALSY
     Dosage: 309.5 MCG/DAY

REACTIONS (9)
  - Wound haemorrhage [None]
  - Venous injury [None]
  - Tracheal haemorrhage [None]
  - Tracheal fistula [None]
  - Post procedural haemorrhage [None]
  - Shock haemorrhagic [None]
  - Arterial haemorrhage [None]
  - Respiratory tract haemorrhage [None]
  - Incision site haemorrhage [None]
